FAERS Safety Report 14154824 (Version 1)
Quarter: 2017Q4

REPORT INFORMATION
  Report Type: Spontaneous
  Country: US (occurrence: US)
  Receive Date: 20171102
  Receipt Date: 20171102
  Transmission Date: 20180321
  Serious: Yes (Life-Threatening, Hospitalization, Disabling)
  Sender: FDA-Public Use
  Company Number: None

PATIENT
  Age: 75 Year
  Sex: Female
  Weight: 56.82 kg

DRUGS (1)
  1. APIXABAN [Suspect]
     Active Substance: APIXABAN
     Route: 048

REACTIONS (6)
  - Brain injury [None]
  - Haemorrhagic stroke [None]
  - Brain midline shift [None]
  - Coma [None]
  - Brain compression [None]
  - Brain oedema [None]

NARRATIVE: CASE EVENT DATE: 20171101
